FAERS Safety Report 5600302-7 (Version None)
Quarter: 2008Q1

REPORT INFORMATION
  Report Type: 
  Country: None (occurrence: None)
  Receive Date: 20080123
  Receipt Date: 20080116
  Transmission Date: 20080703
  Serious: Yes (Disabling, Other)
  Sender: FDA-Public Use
  Company Number: JP-ASTRAZENECA-2008AP00455

PATIENT
  Age: 86 Year
  Sex: Male

DRUGS (1)
  1. XYLOCAINE [Suspect]
     Dosage: DOSE UNKNOWN
     Route: 065
     Dates: start: 20070301, end: 20070301

REACTIONS (3)
  - ANAPHYLACTOID SHOCK [None]
  - HYPOXIC ENCEPHALOPATHY [None]
  - NERVOUS SYSTEM DISORDER [None]
